FAERS Safety Report 10689787 (Version 1)
Quarter: 2015Q1

REPORT INFORMATION
  Report Type: Spontaneous
  Country: US (occurrence: None)
  Receive Date: 20150102
  Receipt Date: 20150102
  Transmission Date: 20150720
  Serious: Yes (Hospitalization)
  Sender: FDA-Public Use
  Company Number: None

PATIENT
  Age: 54 Year
  Sex: Male
  Weight: 93.7 kg

DRUGS (1)
  1. VANCOMYCIN [Suspect]
     Active Substance: VANCOMYCIN
     Indication: INFECTION
     Dosage: MG BID SC
     Route: 058
     Dates: start: 20141212, end: 20141222

REACTIONS (2)
  - Nephritis [None]
  - Acute kidney injury [None]

NARRATIVE: CASE EVENT DATE: 20141222
